FAERS Safety Report 7678031-8 (Version None)
Quarter: 2011Q3

REPORT INFORMATION
  Report Type: 
  Country: None (occurrence: None)
  Receive Date: 20110811
  Receipt Date: 20110802
  Transmission Date: 20111222
  Serious: Yes (Death)
  Sender: FDA-Public Use
  Company Number: FR-GLAXOSMITHKLINE-B0736534A

PATIENT
  Age: 87 Year
  Sex: Male

DRUGS (14)
  1. ASPIRIN [Concomitant]
     Route: 065
  2. VALSARTAN [Suspect]
     Indication: PRODUCT USED FOR UNKNOWN INDICATION
     Route: 048
     Dates: end: 20110628
  3. CALCIPARINE [Concomitant]
     Route: 065
     Dates: start: 20110628
  4. METHYLPREDNISOLONE [Concomitant]
     Indication: DYSPNOEA
     Dates: start: 20110626
  5. AVODART [Suspect]
     Indication: PRODUCT USED FOR UNKNOWN INDICATION
     Route: 048
     Dates: end: 20110628
  6. VITAMIN B-12 [Concomitant]
     Route: 065
     Dates: start: 20110615, end: 20110625
  7. NEBIVOLOL HCL [Concomitant]
     Route: 048
  8. CRESTOR [Suspect]
     Indication: DYSLIPIDAEMIA
     Dosage: 5MG FOUR TIMES PER DAY
     Route: 048
     Dates: end: 20110627
  9. NOVOMIX [Concomitant]
     Route: 065
  10. LEVOTHYROXINE SODIUM [Concomitant]
     Route: 065
  11. LOVENOX [Concomitant]
     Route: 065
     Dates: end: 20110627
  12. CITALOPRAM HYDROBROMIDE [Suspect]
     Indication: PRODUCT USED FOR UNKNOWN INDICATION
     Route: 048
     Dates: end: 20110628
  13. AMOXICILLIN AND CLAVULANATE POTASSIUM [Concomitant]
     Indication: BRONCHIAL OBSTRUCTION
     Dates: start: 20110622
  14. FUROSEMIDE [Concomitant]
     Route: 042
     Dates: start: 20110627

REACTIONS (5)
  - PANCREATITIS [None]
  - HEPATITIS [None]
  - RHABDOMYOLYSIS [None]
  - DISTURBANCE IN ATTENTION [None]
  - RENAL FAILURE [None]
